FAERS Safety Report 23252653 (Version 1)
Quarter: 2023Q4

REPORT INFORMATION
  Report Type: Spontaneous
  Country: US (occurrence: US)
  Receive Date: 20231201
  Receipt Date: 20231201
  Transmission Date: 20240110
  Serious: Yes (Hospitalization)
  Sender: FDA-Public Use
  Company Number: US-MYLANLABS-2023M1126792

PATIENT
  Age: 48 Year
  Sex: Female

DRUGS (1)
  1. METHIMAZOLE [Suspect]
     Active Substance: METHIMAZOLE
     Indication: Graves^ disease
     Dosage: 20 MILLIGRAM, QD
     Route: 065

REACTIONS (4)
  - Agranulocytosis [Recovered/Resolved]
  - Febrile neutropenia [Recovered/Resolved]
  - Septic shock [Recovered/Resolved]
  - Pneumonia [Unknown]
